FAERS Safety Report 9921703 (Version 1)
Quarter: 2014Q1

REPORT INFORMATION
  Report Type: Spontaneous
  Country: FR (occurrence: FR)
  Receive Date: 20140225
  Receipt Date: 20140225
  Transmission Date: 20141002
  Serious: Yes (Hospitalization)
  Sender: FDA-Public Use
  Company Number: FR-ASTRAZENECA-2014SE10937

PATIENT
  Age: 13800 Day
  Sex: Male
  Weight: 81.6 kg

DRUGS (3)
  1. XYLOCAINE [Suspect]
     Indication: JOINT INJECTION
     Route: 065
     Dates: start: 20140120, end: 20140120
  2. ALTIM [Suspect]
     Indication: JOINT INJECTION
     Dosage: 3.75MG/1.5ML, ONCE/SINGLE ADMINISTRATION
     Route: 008
     Dates: start: 20140120, end: 20140120
  3. IOPAMIRON [Suspect]
     Indication: JOINT INJECTION
     Route: 008
     Dates: start: 20140120, end: 20140120

REACTIONS (4)
  - Spinal cord infection [Recovering/Resolving]
  - Pyrexia [Recovered/Resolved]
  - Chills [Recovered/Resolved]
  - Back pain [Recovering/Resolving]
